FAERS Safety Report 11164117 (Version 1)
Quarter: 2015Q2

REPORT INFORMATION
  Report Type: Spontaneous
  Country: US (occurrence: US)
  Receive Date: 20150604
  Receipt Date: 20150604
  Transmission Date: 20150821
  Serious: No
  Sender: FDA-Public Use
  Company Number: US-TARO-2015TAR00165

PATIENT
  Age: 5 Month
  Sex: Female
  Weight: 6.8 kg

DRUGS (1)
  1. FEVERALL [Suspect]
     Active Substance: ACETAMINOPHEN
     Indication: TEETHING
     Dosage: 80 MG, ONCE
     Route: 054
     Dates: start: 20150220, end: 20150220

REACTIONS (2)
  - Rash [Recovered/Resolved]
  - Dermatitis diaper [Recovering/Resolving]

NARRATIVE: CASE EVENT DATE: 20150221
